FAERS Safety Report 9165323 (Version 3)
Quarter: 2013Q2

REPORT INFORMATION
  Report Type: Report from Study
  Country: DE (occurrence: DE)
  Receive Date: 20130315
  Receipt Date: 20130522
  Transmission Date: 20140414
  Serious: Yes (Hospitalization)
  Sender: FDA-Public Use
  Company Number: DE-ABBOTT-13P-062-1061796-00

PATIENT
  Age: 22 Year
  Sex: Male
  Weight: 65 kg

DRUGS (3)
  1. HUMIRA [Suspect]
     Indication: CROHN^S DISEASE
     Route: 058
     Dates: start: 20130201, end: 20130218
  2. GLUCOCORTICOIDS [Concomitant]
     Indication: CROHN^S DISEASE
  3. PREDNISOLONE [Concomitant]
     Indication: CROHN^S DISEASE
     Dates: start: 2013

REACTIONS (2)
  - Intestinal stenosis [Not Recovered/Not Resolved]
  - Lymphadenitis [Recovered/Resolved]
